FAERS Safety Report 23976406 (Version 1)
Quarter: 2024Q2

REPORT INFORMATION
  Report Type: Report from Study
  Country: CA (occurrence: CA)
  Receive Date: 20240614
  Receipt Date: 20240614
  Transmission Date: 20240716
  Serious: Yes (Hospitalization)
  Sender: FDA-Public Use
  Company Number: CA-JNJFOC-20240440234

PATIENT
  Age: 68 Year
  Sex: Female

DRUGS (2)
  1. TREMFYA [Suspect]
     Active Substance: GUSELKUMAB
     Indication: Psoriasis
     Route: 058
     Dates: start: 20190711
  2. PREDNISONE [Concomitant]
     Active Substance: PREDNISONE
     Indication: Lower respiratory tract infection
     Route: 048
     Dates: start: 20240517, end: 20240606

REACTIONS (3)
  - Upper respiratory tract infection [Recovered/Resolved]
  - Chronic obstructive pulmonary disease [Recovered/Resolved]
  - Hypovitaminosis [Recovering/Resolving]

NARRATIVE: CASE EVENT DATE: 20240101
